FAERS Safety Report 23729450 (Version 1)
Quarter: 2024Q2

REPORT INFORMATION
  Report Type: Spontaneous
  Country: CN (occurrence: CN)
  Receive Date: 20240410
  Receipt Date: 20240410
  Transmission Date: 20240715
  Serious: Yes (Other)
  Sender: FDA-Public Use
  Company Number: CN-BoehringerIngelheim-2024-BI-020534

PATIENT
  Age: 79 Year
  Sex: Male
  Weight: 65.0 kg

DRUGS (1)
  1. GILOTRIF [Suspect]
     Active Substance: AFATINIB
     Indication: Lung cancer metastatic
     Route: 048
     Dates: start: 20220507, end: 20240315

REACTIONS (4)
  - Pigmentation disorder [Recovering/Resolving]
  - Skin injury [Recovering/Resolving]
  - Skin exfoliation [Recovering/Resolving]
  - Pruritus [Recovering/Resolving]

NARRATIVE: CASE EVENT DATE: 20240315
